FAERS Safety Report 5200046-X (Version None)
Quarter: 2007Q1

REPORT INFORMATION
  Report Type: 
  Country: None (occurrence: None)
  Receive Date: 20070105
  Receipt Date: 20061225
  Transmission Date: 20070707
  Serious: Yes (Life-Threatening)
  Sender: FDA-Public Use
  Company Number: GB-ELI_LILLY_AND_COMPANY-GB200612004303

PATIENT
  Age: 68 Year
  Sex: Male

DRUGS (1)
  1. XIGRIS [Suspect]
     Dosage: 24 UG, OTHER
     Dates: start: 20061223

REACTIONS (1)
  - THROMBOCYTOPENIA [None]
